FAERS Safety Report 17249942 (Version 1)
Quarter: 2020Q1

REPORT INFORMATION
  Report Type: Spontaneous
  Country: US (occurrence: US)
  Receive Date: 20200109
  Receipt Date: 20200109
  Transmission Date: 20200409
  Serious: Yes (Hospitalization)
  Sender: FDA-Public Use
  Company Number: US-ROCHE-2518245

PATIENT
  Sex: Male

DRUGS (1)
  1. ESBRIET [Suspect]
     Active Substance: PIRFENIDONE
     Indication: IDIOPATHIC PULMONARY FIBROSIS
     Dosage: NEXT DOSE: 2 TAB 3 TIMES DAILY THEN 3 TAB 3 TIMES DAILY WITH MEAL
     Route: 048

REACTIONS (2)
  - Pneumonia [Unknown]
  - Productive cough [Unknown]
